FAERS Safety Report 14305165 (Version 1)
Quarter: 2017Q4

REPORT INFORMATION
  Report Type: Report from Study
  Country: JP (occurrence: JP)
  Receive Date: 20171219
  Receipt Date: 20171219
  Transmission Date: 20180321
  Serious: Yes (Hospitalization, Other)
  Sender: FDA-Public Use
  Company Number: JP-OTSUKA-007711

PATIENT
  Age: 52 Year
  Sex: Male
  Weight: 58.4 kg

DRUGS (29)
  1. ARIPIPRAZOLE. [Suspect]
     Active Substance: ARIPIPRAZOLE
     Indication: SCHIZOPHRENIA
     Dosage: 3 MG, QD
     Route: 050
     Dates: start: 20090618, end: 20090624
  2. ARIPIPRAZOLE. [Suspect]
     Active Substance: ARIPIPRAZOLE
     Dosage: 6 MG, QD
     Route: 050
     Dates: start: 20090625, end: 20090805
  3. ARIPIPRAZOLE. [Suspect]
     Active Substance: ARIPIPRAZOLE
     Dosage: 20 MG, QD
     Route: 050
     Dates: start: 20090820, end: 20090902
  4. MARZULENE S [Concomitant]
     Active Substance: GLUTAMINE\SODIUM GUALENATE
     Indication: PRODUCT USED FOR UNKNOWN INDICATION
     Dosage: 2 G, QD
     Route: 050
     Dates: start: 20091110
  5. LONASEN [Concomitant]
     Active Substance: BLONANSERIN
     Indication: SCHIZOPHRENIA
     Dosage: 16 MG, QD
     Route: 050
     Dates: start: 20090528, end: 20090805
  6. LONASEN [Concomitant]
     Active Substance: BLONANSERIN
     Dosage: 8 MG, QD
     Route: 050
     Dates: start: 20090806, end: 20090819
  7. RISPERDAL [Concomitant]
     Active Substance: RISPERIDONE
     Dosage: 6 ML, QD
     Route: 050
     Dates: start: 20090902, end: 20091014
  8. ZOPICOOL [Concomitant]
     Active Substance: ZOPICLONE
     Indication: SCHIZOPHRENIA
     Dosage: 15 MG, QD
     Route: 050
     Dates: start: 20090528
  9. HYSERENIN [Concomitant]
     Active Substance: VALPROATE SODIUM
     Indication: PRODUCT USED FOR UNKNOWN INDICATION
     Dosage: 800 MG, QD
     Route: 050
     Dates: start: 20090528
  10. SODIUM CHLORIDE. [Concomitant]
     Active Substance: SODIUM CHLORIDE
     Indication: PRODUCT USED FOR UNKNOWN INDICATION
     Dosage: 3 G, QD
     Route: 050
     Dates: start: 20090528, end: 20090529
  11. FAMOTIDINE. [Concomitant]
     Active Substance: FAMOTIDINE
     Indication: PRODUCT USED FOR UNKNOWN INDICATION
     Dosage: UNK
     Route: 065
     Dates: start: 20090528
  12. ZOPICLONE [Concomitant]
     Active Substance: ZOPICLONE
     Indication: PRODUCT USED FOR UNKNOWN INDICATION
     Dosage: UNK
     Route: 065
     Dates: start: 20090528
  13. ARIPIPRAZOLE. [Suspect]
     Active Substance: ARIPIPRAZOLE
     Dosage: 15 MG, QD
     Route: 050
     Dates: start: 20090903, end: 20100513
  14. ARIPIPRAZOLE. [Suspect]
     Active Substance: ARIPIPRAZOLE
     Dosage: 10 MG, QD
     Route: 050
     Dates: start: 20100514
  15. EFFORTIL [Concomitant]
     Active Substance: ETILEFRINE HYDROCHLORIDE
     Indication: PRODUCT USED FOR UNKNOWN INDICATION
     Dosage: 5 MG, QD
     Route: 050
     Dates: start: 20090528, end: 20091014
  16. RISPERIDONE. [Concomitant]
     Active Substance: RISPERIDONE
     Indication: PRODUCT USED FOR UNKNOWN INDICATION
     Dosage: UNK
     Route: 048
     Dates: start: 20090528
  17. RISPERDAL [Concomitant]
     Active Substance: RISPERIDONE
     Dosage: 6 ML, QD
     Route: 050
     Dates: start: 20100512
  18. AKINETON [Concomitant]
     Active Substance: BIPERIDEN HYDROCHLORIDE
     Indication: PRODUCT USED FOR UNKNOWN INDICATION
     Dosage: 2 MG, QD
     Route: 050
     Dates: start: 20090528
  19. SODIUM CHLORIDE. [Concomitant]
     Active Substance: SODIUM CHLORIDE
     Dosage: 4 G, QD
     Route: 050
     Dates: start: 20090608, end: 20090709
  20. SODIUM CHLORIDE. [Concomitant]
     Active Substance: SODIUM CHLORIDE
     Dosage: 7 G, QD
     Route: 050
     Dates: start: 20090710, end: 20090723
  21. VALPROATE SODIUM. [Concomitant]
     Active Substance: VALPROATE SODIUM
     Indication: PRODUCT USED FOR UNKNOWN INDICATION
     Dosage: UNK
     Route: 065
     Dates: start: 20090528
  22. ARIPIPRAZOLE. [Suspect]
     Active Substance: ARIPIPRAZOLE
     Indication: SCHIZOPHRENIA
     Dosage: 20 MG, QD
     Route: 050
     Dates: start: 20090618
  23. FLUNITRAZEPAM [Concomitant]
     Active Substance: FLUNITRAZEPAM
     Indication: SCHIZOPHRENIA
     Dosage: 4 MG, QD
     Route: 050
     Dates: start: 20090528
  24. HIBERNA [Concomitant]
     Active Substance: PROMETHAZINE HYDROCHLORIDE
     Indication: SCHIZOPHRENIA
     Dosage: 50 MG, QD
     Route: 050
     Dates: start: 20091015
  25. ARIPIPRAZOLE. [Suspect]
     Active Substance: ARIPIPRAZOLE
     Dosage: 12 MG, QD
     Route: 050
     Dates: start: 20090806, end: 20090819
  26. SODIUM CHLORIDE. [Concomitant]
     Active Substance: SODIUM CHLORIDE
     Dosage: 10 G, QD
     Route: 050
     Dates: start: 20090724
  27. RISPERDAL [Concomitant]
     Active Substance: RISPERIDONE
     Indication: SCHIZOPHRENIA
     Dosage: 4 ML, QD
     Route: 050
     Dates: start: 20090528, end: 20090901
  28. RISPERDAL [Concomitant]
     Active Substance: RISPERIDONE
     Dosage: 4 ML, QD
     Route: 050
     Dates: start: 20091015, end: 20100511
  29. TIOSTAR [Concomitant]
     Active Substance: FAMOTIDINE
     Indication: PRODUCT USED FOR UNKNOWN INDICATION
     Dosage: 40 MG, QD
     Route: 050
     Dates: start: 20090528

REACTIONS (5)
  - Schizophrenia [Unknown]
  - Pneumonia [Recovered/Resolved]
  - Weight decreased [Unknown]
  - Psychiatric symptom [Recovering/Resolving]
  - Psychiatric symptom [Recovering/Resolving]

NARRATIVE: CASE EVENT DATE: 20090901
